FAERS Safety Report 19771886 (Version 2)
Quarter: 2021Q3

REPORT INFORMATION
  Report Type: Spontaneous
  Country: US (occurrence: US)
  Receive Date: 20210831
  Receipt Date: 20210831
  Transmission Date: 20211014
  Serious: No
  Sender: FDA-Public Use
  Company Number: US-SA-2021SA283952

PATIENT
  Age: 98 Year
  Sex: Male

DRUGS (1)
  1. SELSUN BLUE MEDICATED [Suspect]
     Active Substance: SELENIUM SULFIDE
     Indication: SEBORRHOEA
     Dosage: UNK

REACTIONS (2)
  - Condition aggravated [Unknown]
  - Seborrhoea [Unknown]
